FAERS Safety Report 7478832-5 (Version None)
Quarter: 2011Q2

REPORT INFORMATION
  Report Type: 
  Country: None (occurrence: None)
  Receive Date: 20110513
  Receipt Date: 20110507
  Transmission Date: 20111010
  Serious: Yes (Hospitalization, Other)
  Sender: FDA-Public Use
  Company Number: MX-ROCHE-775941

PATIENT
  Sex: Male

DRUGS (2)
  1. PEGASYS [Concomitant]
     Indication: HEPATITIS C
     Dosage: DOSE AND FREQUENCY:UNKNOWN
     Route: 065
  2. RIBAVIRIN [Suspect]
     Indication: HEPATITIS C
     Dosage: DOSE AND FREQUENCY:UNKNOWN
     Route: 065

REACTIONS (2)
  - PANCREATITIS [None]
  - RENAL PAIN [None]
